FAERS Safety Report 5190557-8 (Version None)
Quarter: 2006Q4

REPORT INFORMATION
  Report Type: 
  Country: None (occurrence: None)
  Receive Date: 20061222
  Receipt Date: 20061215
  Transmission Date: 20070319
  Serious: Yes (Hospitalization)
  Sender: FDA-Public Use
  Company Number: DE-ROCHE-475263

PATIENT
  Age: 66 Year
  Sex: Female
  Weight: 47 kg

DRUGS (9)
  1. CAPECITABINE [Suspect]
     Dosage: MG/2
     Route: 048
     Dates: start: 20060707, end: 20061018
  2. AMARYL [Concomitant]
     Route: 048
     Dates: start: 20061019
  3. 1 CONCOMITANT DRUG [Concomitant]
  4. DOMPERIDON [Concomitant]
  5. PANTOZOL [Concomitant]
  6. IBUPROFEN [Concomitant]
  7. 1 CONCOMITANT DRUG [Concomitant]
     Dosage: REPORTED AS GARGLE LIQUID
  8. 1 CONCOMITANT DRUG [Concomitant]
     Dosage: REPORTED AS ^DALORUIM^
  9. AROMASIN [Concomitant]

REACTIONS (1)
  - OESOPHAGEAL STENOSIS [None]
